FAERS Safety Report 9376275 (Version 1)
Quarter: 2013Q3

REPORT INFORMATION
  Report Type: Spontaneous
  Country: CN (occurrence: CN)
  Receive Date: 20130701
  Receipt Date: 20130701
  Transmission Date: 20140515
  Serious: Yes (Hospitalization)
  Sender: FDA-Public Use
  Company Number: CN-JNJFOC-20130615319

PATIENT
  Age: 57 Year
  Sex: Female

DRUGS (2)
  1. RISPERDAL [Suspect]
     Indication: SEDATION
     Route: 048
     Dates: start: 20111219, end: 20111223
  2. CARBAMAZEPINE [Suspect]
     Indication: PRODUCT USED FOR UNKNOWN INDICATION
     Route: 065

REACTIONS (3)
  - Bone marrow failure [Recovering/Resolving]
  - Infection [Recovering/Resolving]
  - Off label use [Unknown]
